FAERS Safety Report 24166668 (Version 13)
Quarter: 2025Q2

REPORT INFORMATION
  Report Type: Spontaneous
  Country: GB (occurrence: GB)
  Receive Date: 20240802
  Receipt Date: 20250605
  Transmission Date: 20250716
  Serious: Yes (Hospitalization, Other)
  Sender: SANDOZ
  Company Number: None

PATIENT
  Age: 54 Year
  Sex: Female
  Weight: 71 kg

DRUGS (97)
  1. ADALIMUMAB [Suspect]
     Active Substance: ADALIMUMAB
     Route: 058
  2. ADALIMUMAB [Suspect]
     Active Substance: ADALIMUMAB
     Route: 058
  3. ADALIMUMAB [Suspect]
     Active Substance: ADALIMUMAB
     Route: 058
  4. ADALIMUMAB [Suspect]
     Active Substance: ADALIMUMAB
     Route: 058
  5. ADALIMUMAB [Suspect]
     Active Substance: ADALIMUMAB
     Route: 058
  6. ADALIMUMAB [Suspect]
     Active Substance: ADALIMUMAB
     Route: 058
  7. ADALIMUMAB [Suspect]
     Active Substance: ADALIMUMAB
     Route: 058
  8. ADALIMUMAB [Suspect]
     Active Substance: ADALIMUMAB
     Route: 058
  9. ADALIMUMAB [Suspect]
     Active Substance: ADALIMUMAB
     Route: 058
  10. ADALIMUMAB [Suspect]
     Active Substance: ADALIMUMAB
     Route: 058
  11. ADALIMUMAB [Suspect]
     Active Substance: ADALIMUMAB
     Route: 058
  12. ADALIMUMAB [Suspect]
     Active Substance: ADALIMUMAB
     Route: 058
  13. ADALIMUMAB [Suspect]
     Active Substance: ADALIMUMAB
     Route: 058
  14. ADALIMUMAB [Suspect]
     Active Substance: ADALIMUMAB
     Route: 058
  15. ADALIMUMAB [Suspect]
     Active Substance: ADALIMUMAB
     Route: 058
  16. ADALIMUMAB [Suspect]
     Active Substance: ADALIMUMAB
     Route: 058
  17. ADALIMUMAB [Suspect]
     Active Substance: ADALIMUMAB
     Route: 058
  18. ADALIMUMAB [Suspect]
     Active Substance: ADALIMUMAB
     Route: 058
  19. ADALIMUMAB [Suspect]
     Active Substance: ADALIMUMAB
     Route: 058
  20. ADALIMUMAB [Suspect]
     Active Substance: ADALIMUMAB
     Route: 058
  21. ADALIMUMAB [Suspect]
     Active Substance: ADALIMUMAB
     Route: 058
  22. ADALIMUMAB [Suspect]
     Active Substance: ADALIMUMAB
     Route: 058
  23. ADALIMUMAB [Suspect]
     Active Substance: ADALIMUMAB
     Route: 058
  24. ADALIMUMAB [Suspect]
     Active Substance: ADALIMUMAB
     Route: 058
  25. ADALIMUMAB [Suspect]
     Active Substance: ADALIMUMAB
     Route: 058
  26. ADALIMUMAB [Suspect]
     Active Substance: ADALIMUMAB
     Route: 058
  27. ADALIMUMAB [Suspect]
     Active Substance: ADALIMUMAB
     Route: 058
  28. ADALIMUMAB [Suspect]
     Active Substance: ADALIMUMAB
     Route: 058
  29. ADALIMUMAB [Suspect]
     Active Substance: ADALIMUMAB
     Route: 058
  30. ADALIMUMAB [Suspect]
     Active Substance: ADALIMUMAB
     Route: 065
  31. ADALIMUMAB [Suspect]
     Active Substance: ADALIMUMAB
     Route: 065
  32. ADALIMUMAB [Suspect]
     Active Substance: ADALIMUMAB
     Indication: Product used for unknown indication
     Route: 065
  33. ADALIMUMAB [Suspect]
     Active Substance: ADALIMUMAB
     Route: 065
  34. ADALIMUMAB [Suspect]
     Active Substance: ADALIMUMAB
     Route: 065
  35. ADALIMUMAB [Suspect]
     Active Substance: ADALIMUMAB
     Route: 065
  36. ADALIMUMAB [Suspect]
     Active Substance: ADALIMUMAB
     Route: 065
  37. ADALIMUMAB [Suspect]
     Active Substance: ADALIMUMAB
     Route: 065
  38. ADALIMUMAB [Suspect]
     Active Substance: ADALIMUMAB
     Route: 065
  39. ADALIMUMAB [Suspect]
     Active Substance: ADALIMUMAB
     Route: 065
  40. ADALIMUMAB [Suspect]
     Active Substance: ADALIMUMAB
     Route: 065
  41. LETROZOLE [Suspect]
     Active Substance: LETROZOLE
     Dosage: 2.5 MG, QD (DAILY)
     Route: 048
     Dates: start: 20240221, end: 20240430
  42. LETROZOLE [Suspect]
     Active Substance: LETROZOLE
     Indication: Breast cancer female
     Dosage: 2.5 MILLIGRAM, QD (2.5 MG, DAILY)
     Route: 048
     Dates: start: 20240221, end: 20240430
  43. LETROZOLE [Suspect]
     Active Substance: LETROZOLE
     Dosage: 2.5 MILLIGRAM, QD/ 2.5 MG, QD (2.5 MG,  DAILY)/ (DOSAGE1: UNIT=NOT AVAILABLE) /  (CUMULATIVE DOSE TO
     Route: 048
     Dates: start: 20240221, end: 20240430
  44. LETROZOLE [Suspect]
     Active Substance: LETROZOLE
     Indication: Breast cancer
     Dosage: 2.5 MG, QD; 2.5 MG, 1X/DAY
     Route: 065
     Dates: start: 20240221, end: 20240430
  45. PALBOCICLIB [Suspect]
     Active Substance: PALBOCICLIB
     Indication: Breast cancer
     Route: 048
     Dates: start: 20240221, end: 20240423
  46. PALBOCICLIB [Suspect]
     Active Substance: PALBOCICLIB
     Indication: Breast cancer
     Route: 048
     Dates: start: 20240221, end: 20240423
  47. PALBOCICLIB [Suspect]
     Active Substance: PALBOCICLIB
     Route: 048
     Dates: start: 20240221, end: 20240423
  48. SECUKINUMAB [Suspect]
     Active Substance: SECUKINUMAB
     Route: 065
  49. SECUKINUMAB [Suspect]
     Active Substance: SECUKINUMAB
     Route: 065
  50. SECUKINUMAB [Suspect]
     Active Substance: SECUKINUMAB
     Route: 065
  51. SECUKINUMAB [Suspect]
     Active Substance: SECUKINUMAB
     Route: 065
  52. SECUKINUMAB [Suspect]
     Active Substance: SECUKINUMAB
     Route: 065
  53. SECUKINUMAB [Suspect]
     Active Substance: SECUKINUMAB
     Route: 065
  54. SECUKINUMAB [Suspect]
     Active Substance: SECUKINUMAB
     Route: 065
  55. SECUKINUMAB [Suspect]
     Active Substance: SECUKINUMAB
     Route: 058
  56. SECUKINUMAB [Suspect]
     Active Substance: SECUKINUMAB
     Route: 065
  57. SECUKINUMAB [Suspect]
     Active Substance: SECUKINUMAB
     Route: 065
  58. SECUKINUMAB [Suspect]
     Active Substance: SECUKINUMAB
     Route: 058
  59. SECUKINUMAB [Suspect]
     Active Substance: SECUKINUMAB
     Route: 058
  60. SECUKINUMAB [Suspect]
     Active Substance: SECUKINUMAB
     Route: 065
  61. SECUKINUMAB [Suspect]
     Active Substance: SECUKINUMAB
     Indication: Product used for unknown indication
     Route: 058
  62. SECUKINUMAB [Suspect]
     Active Substance: SECUKINUMAB
     Route: 058
  63. SECUKINUMAB [Suspect]
     Active Substance: SECUKINUMAB
     Route: 058
  64. SECUKINUMAB [Suspect]
     Active Substance: SECUKINUMAB
     Route: 058
  65. SECUKINUMAB [Suspect]
     Active Substance: SECUKINUMAB
     Route: 058
  66. SECUKINUMAB [Suspect]
     Active Substance: SECUKINUMAB
     Route: 058
  67. SECUKINUMAB [Suspect]
     Active Substance: SECUKINUMAB
     Route: 058
  68. SECUKINUMAB [Suspect]
     Active Substance: SECUKINUMAB
     Route: 058
  69. SECUKINUMAB [Suspect]
     Active Substance: SECUKINUMAB
     Route: 058
  70. SECUKINUMAB [Suspect]
     Active Substance: SECUKINUMAB
     Route: 058
  71. SECUKINUMAB [Suspect]
     Active Substance: SECUKINUMAB
     Route: 058
  72. SECUKINUMAB [Suspect]
     Active Substance: SECUKINUMAB
     Route: 058
  73. SECUKINUMAB [Suspect]
     Active Substance: SECUKINUMAB
     Route: 058
  74. SECUKINUMAB [Suspect]
     Active Substance: SECUKINUMAB
     Route: 058
  75. SECUKINUMAB [Suspect]
     Active Substance: SECUKINUMAB
     Route: 058
  76. SECUKINUMAB [Suspect]
     Active Substance: SECUKINUMAB
     Route: 058
  77. SECUKINUMAB [Suspect]
     Active Substance: SECUKINUMAB
     Route: 058
  78. SECUKINUMAB [Suspect]
     Active Substance: SECUKINUMAB
     Route: 058
  79. SECUKINUMAB [Suspect]
     Active Substance: SECUKINUMAB
     Route: 058
  80. SECUKINUMAB [Suspect]
     Active Substance: SECUKINUMAB
     Route: 058
  81. SECUKINUMAB [Suspect]
     Active Substance: SECUKINUMAB
     Route: 058
  82. SECUKINUMAB [Suspect]
     Active Substance: SECUKINUMAB
     Route: 065
  83. SECUKINUMAB [Suspect]
     Active Substance: SECUKINUMAB
     Route: 065
  84. SECUKINUMAB [Suspect]
     Active Substance: SECUKINUMAB
     Route: 065
  85. SECUKINUMAB [Suspect]
     Active Substance: SECUKINUMAB
     Route: 065
  86. SECUKINUMAB [Suspect]
     Active Substance: SECUKINUMAB
     Route: 065
  87. SECUKINUMAB [Suspect]
     Active Substance: SECUKINUMAB
     Route: 065
  88. SECUKINUMAB [Suspect]
     Active Substance: SECUKINUMAB
     Route: 065
  89. SECUKINUMAB [Suspect]
     Active Substance: SECUKINUMAB
     Route: 065
  90. SECUKINUMAB [Suspect]
     Active Substance: SECUKINUMAB
     Route: 065
  91. SECUKINUMAB [Suspect]
     Active Substance: SECUKINUMAB
     Route: 065
  92. SECUKINUMAB [Suspect]
     Active Substance: SECUKINUMAB
     Route: 065
  93. SECUKINUMAB [Suspect]
     Active Substance: SECUKINUMAB
     Route: 058
  94. EDOXABAN TOSYLATE [Concomitant]
     Active Substance: EDOXABAN TOSYLATE
     Indication: Product used for unknown indication
     Route: 048
     Dates: start: 202401
  95. EDOXABAN TOSYLATE [Concomitant]
     Active Substance: EDOXABAN TOSYLATE
     Route: 048
     Dates: start: 202401
  96. EDOXABAN TOSYLATE [Concomitant]
     Active Substance: EDOXABAN TOSYLATE
     Route: 065
     Dates: start: 202401
  97. EDOXABAN TOSYLATE [Concomitant]
     Active Substance: EDOXABAN TOSYLATE
     Route: 065
     Dates: start: 202401

REACTIONS (5)
  - Anaemia [Recovered/Resolved]
  - Metastases to bone [Unknown]
  - Systemic lupus erythematosus [Unknown]
  - White blood cell count decreased [Unknown]
  - Neoplasm progression [Unknown]

NARRATIVE: CASE EVENT DATE: 20240330
